FAERS Safety Report 8635222 (Version 4)
Quarter: 2012Q4

REPORT INFORMATION
  Report Type: 
  Country: US (occurrence: US)
  Receive Date: 20120626
  Receipt Date: 20121226
  Transmission Date: 20130627
  Serious: No
  Sender: FDA-Public Use
  Company Number: US-PFIZER INC-2012151084

PATIENT
  Age: 68 Year
  Sex: Female
  Weight: 65.8 kg

DRUGS (1)
  1. PREMARIN [Suspect]
     Indication: HORMONE REPLACEMENT THERAPY
     Dosage: 0.625 mg, 1x/day
     Route: 048

REACTIONS (8)
  - Product counterfeit [Unknown]
  - Hyperhidrosis [Not Recovered/Not Resolved]
  - Bone density decreased [Unknown]
  - Poor quality drug administered [Unknown]
  - Drug ineffective [Unknown]
  - Headache [Not Recovered/Not Resolved]
  - Hot flush [Not Recovered/Not Resolved]
  - Night sweats [Recovering/Resolving]
